FAERS Safety Report 19682356 (Version 3)
Quarter: 2021Q3

REPORT INFORMATION
  Report Type: Spontaneous
  Country: AT (occurrence: AT)
  Receive Date: 20210811
  Receipt Date: 20210825
  Transmission Date: 20211014
  Serious: Yes (Life-Threatening, Hospitalization, Other)
  Sender: FDA-Public Use
  Company Number: AT-B.I. PHARMACEUTICALS,INC./RIDGEFIELD-2021-BI-120503

PATIENT
  Sex: Female
  Weight: 88 kg

DRUGS (6)
  1. APIDRA [Concomitant]
     Active Substance: INSULIN GLULISINE
     Dosage: PREVIOUS ANTI?DIABETIC MEDICATION: APIDRA 4?4?4
     Route: 067
  2. TOUJEO [Concomitant]
     Active Substance: INSULIN GLARGINE
     Dosage: PREVIOUS ANTI?DIABETIC MEDICATIONS: TOUJEO 0?0?0?8
  3. APIDRA [Concomitant]
     Active Substance: INSULIN GLULISINE
     Indication: HYPERGLYCAEMIA
     Dosage: DAILY DOSAGE: 2?2?2;
  4. EUTHYROX [Concomitant]
     Active Substance: LEVOTHYROXINE SODIUM
     Indication: PRODUCT USED FOR UNKNOWN INDICATION
     Dosage: DAILY DOSAGE: 1?0?0?0
  5. TOUJEO [Concomitant]
     Active Substance: INSULIN GLARGINE
     Indication: BLOOD INSULIN ABNORMAL
     Dosage: DAILY DOSAGE: 0?0?8?0
  6. SYNJARDY [Suspect]
     Active Substance: EMPAGLIFLOZIN\METFORMIN HYDROCHLORIDE
     Indication: DIABETES MELLITUS
     Dosage: 12,5/1000MG?DAILY DOSAGE: 1?0?1?0
     Route: 048
     Dates: start: 20210806, end: 20210806

REACTIONS (5)
  - Ketoacidosis [Recovered/Resolved]
  - Dehydration [Recovered/Resolved]
  - Sepsis [Unknown]
  - Pyrexia [Unknown]
  - Blood culture positive [Unknown]

NARRATIVE: CASE EVENT DATE: 20210806
